FAERS Safety Report 8122522-2 (Version None)
Quarter: 2012Q1

REPORT INFORMATION
  Report Type: 
  Country: None (occurrence: None)
  Receive Date: 20120207
  Receipt Date: 20120207
  Transmission Date: 20120608
  Serious: Yes (Hospitalization)
  Sender: FDA-Public Use
  Company Number: None

PATIENT
  Sex: Female
  Weight: 10.6 kg

DRUGS (1)
  1. KINERET [Suspect]
     Indication: INTERFERON GAMMA RECEPTOR DEFICIENCY
     Dosage: 2.5MG/KG/DAY DAILY SC
     Route: 058

REACTIONS (15)
  - LOBAR PNEUMONIA [None]
  - RESPIRATORY RATE INCREASED [None]
  - VOMITING [None]
  - GASTROENTERITIS [None]
  - URTICARIA [None]
  - RHINORRHOEA [None]
  - LUNG CONSOLIDATION [None]
  - RASH PRURITIC [None]
  - PYREXIA [None]
  - RASH GENERALISED [None]
  - DYSPNOEA [None]
  - ATELECTASIS [None]
  - EYELID OEDEMA [None]
  - RASH ERYTHEMATOUS [None]
  - DRUG ERUPTION [None]
